FAERS Safety Report 6204742-7 (Version None)
Quarter: 2009Q2

REPORT INFORMATION
  Report Type: 
  Country: None (occurrence: None)
  Receive Date: 20090527
  Receipt Date: 20090515
  Transmission Date: 20091009
  Serious: Yes (Other)
  Sender: FDA-Public Use
  Company Number: AU-PFIZER INC-2009214815

PATIENT

DRUGS (4)
  1. CAVERJECT IMPULSE [Suspect]
     Dosage: 20 UG, UNK
     Dates: start: 20040101
  2. CARDIZEM [Concomitant]
     Indication: HYPERTENSION
  3. PERINDOPRIL ERBUMINE [Concomitant]
     Indication: HYPERTENSION
  4. PHYSIOTENS [Concomitant]
     Indication: HYPERTENSION

REACTIONS (2)
  - HOT FLUSH [None]
  - HYPERTENSION [None]
